FAERS Safety Report 4315459-8 (Version None)
Quarter: 2004Q1

REPORT INFORMATION
  Report Type: 
  Country: None (occurrence: None)
  Receive Date: 20040309
  Receipt Date: 20040226
  Transmission Date: 20041129
  Serious: Yes (Hospitalization)
  Sender: FDA-Public Use
  Company Number: US068084

PATIENT
  Age: 69 Year
  Sex: Female
  Weight: 55.4 kg

DRUGS (9)
  1. EPOGEN [Suspect]
     Indication: ANAEMIA OF MALIGNANT DISEASE
     Dosage: 60000 U, 1 IN 1 WEEKS, SC
     Dates: start: 20020101, end: 20030801
  2. DICLOFENAC SODIUM [Concomitant]
  3. PREDNISONE [Concomitant]
  4. ATORVASTATIN CALCIUM [Concomitant]
  5. VENLAFAXINE HCL [Concomitant]
  6. OMEPRAZOLE [Concomitant]
  7. FLUOROURACIL [Concomitant]
  8. TAMOXIFEN CITRATE [Concomitant]
  9. NEUPOGEN [Concomitant]

REACTIONS (4)
  - COLON CANCER [None]
  - DIARRHOEA [None]
  - VOMITING [None]
  - WOUND DEHISCENCE [None]
